FAERS Safety Report 24461504 (Version 1)
Quarter: 2024Q4

REPORT INFORMATION
  Report Type: Spontaneous
  Country: TR (occurrence: TR)
  Receive Date: 20241018
  Receipt Date: 20241018
  Transmission Date: 20250115
  Serious: Yes (Other)
  Sender: AMGEN
  Company Number: TR-AMGEN-TURSP2024203263

PATIENT

DRUGS (6)
  1. ADALIMUMAB [Suspect]
     Active Substance: ADALIMUMAB
     Indication: Ankylosing spondylitis
     Dosage: UNK
     Route: 065
  2. ADALIMUMAB [Suspect]
     Active Substance: ADALIMUMAB
     Indication: Rheumatoid arthritis
  3. ADALIMUMAB [Suspect]
     Active Substance: ADALIMUMAB
     Indication: Psoriatic arthropathy
  4. ADALIMUMAB [Suspect]
     Active Substance: ADALIMUMAB
     Indication: Uveitis
  5. ADALIMUMAB [Suspect]
     Active Substance: ADALIMUMAB
     Indication: Behcet^s syndrome
  6. ADALIMUMAB [Suspect]
     Active Substance: ADALIMUMAB
     Indication: Arthritis enteropathic

REACTIONS (26)
  - Transient ischaemic attack [Unknown]
  - Seizure [Unknown]
  - Subdural haematoma [Unknown]
  - Cerebral infarction [Unknown]
  - Encephalomalacia [Unknown]
  - Cerebral venous thrombosis [Unknown]
  - Hemiparesis [Unknown]
  - Behcet^s syndrome [Unknown]
  - Uveitis [Unknown]
  - Ankylosing spondylitis [Unknown]
  - Rheumatoid arthritis [Unknown]
  - Autoimmune demyelinating disease [Unknown]
  - Depressed level of consciousness [Unknown]
  - Extrapyramidal disorder [Unknown]
  - Headache [Unknown]
  - Vertigo [Unknown]
  - Restless legs syndrome [Unknown]
  - Hypoaesthesia [Unknown]
  - Neck pain [Unknown]
  - Back pain [Unknown]
  - Radiculopathy [Unknown]
  - Intervertebral disc protrusion [Unknown]
  - Ataxia [Unknown]
  - Rheumatic disorder [Unknown]
  - Magnetic resonance imaging abnormal [Unknown]
  - Sensory disturbance [Unknown]
